FAERS Safety Report 12882762 (Version 4)
Quarter: 2016Q4

REPORT INFORMATION
  Report Type: Spontaneous
  Country: US (occurrence: US)
  Receive Date: 20161025
  Receipt Date: 20161222
  Transmission Date: 20170207
  Serious: Yes (Other)
  Sender: FDA-Public Use
  Company Number: US-BAYER-2016-199555

PATIENT
  Age: 78 Year
  Sex: Female
  Weight: 57.59 kg

DRUGS (1)
  1. MIRALAX [Suspect]
     Active Substance: POLYETHYLENE GLYCOL 3350
     Indication: GASTROINTESTINAL DISORDER
     Dosage: 1 DF, UNK
     Route: 048

REACTIONS (7)
  - Abdominal discomfort [Recovered/Resolved]
  - Off label use [Unknown]
  - Product contamination physical [None]
  - Fear [Recovered/Resolved]
  - Product use issue [Unknown]
  - Oropharyngeal discomfort [Recovered/Resolved]
  - Haemorrhage [Recovered/Resolved]

NARRATIVE: CASE EVENT DATE: 2016
